FAERS Safety Report 17270073 (Version 1)
Quarter: 2020Q1

REPORT INFORMATION
  Report Type: Spontaneous
  Country: US (occurrence: US)
  Receive Date: 20200114
  Receipt Date: 20200114
  Transmission Date: 20200409
  Serious: No
  Sender: FDA-Public Use
  Company Number: US-PARI RESPIRATORY EQUIPMENT, INC.-2019PAR00093

PATIENT
  Sex: Female
  Weight: 30.98 kg

DRUGS (6)
  1. KITABIS PAK [Suspect]
     Active Substance: TOBRAMYCIN
     Indication: TRACHEOSTOMY
  2. NORDITROPIN [Concomitant]
     Active Substance: SOMATROPIN
  3. KITABIS PAK [Suspect]
     Active Substance: TOBRAMYCIN
     Indication: ENDOCRINE DISORDER
  4. KITABIS PAK [Suspect]
     Active Substance: TOBRAMYCIN
     Indication: DEPENDENCE ON RESPIRATOR
  5. ANCILLARY SUPPLIES [Concomitant]
  6. KITABIS PAK [Suspect]
     Active Substance: TOBRAMYCIN
     Indication: BODY HEIGHT BELOW NORMAL
     Dosage: 300 MG, 2X/DAY
     Dates: start: 2016

REACTIONS (3)
  - Product dose omission [Not Recovered/Not Resolved]
  - Product use in unapproved indication [Not Recovered/Not Resolved]
  - Mucosal discolouration [Unknown]
